FAERS Safety Report 4881214-3 (Version None)
Quarter: 2005Q4

REPORT INFORMATION
  Report Type: 
  Country: None (occurrence: None)
  Receive Date: 20051215
  Receipt Date: 20051024
  Transmission Date: 20060501
  Serious: Yes (Death, Hospitalization)
  Sender: FDA-Public Use
  Company Number: US-JNJFOC-20050702715

PATIENT
  Age: 25 Year
  Sex: Female
  Weight: 104.3273 kg

DRUGS (5)
  1. ORTHO EVRA [Suspect]
     Dosage: 1 DOSE(S), 3 IN 4 WEEK, TRANSDERMAL
     Route: 062
     Dates: start: 20041115
  2. PERCOCET [Concomitant]
  3. LORATAB (LORACARBEF) TABLETS [Concomitant]
  4. LOWDEN (ALL OTHER THERAPEUTIC PRODUCTS) [Concomitant]
  5. ACETAMINOPHEN [Concomitant]

REACTIONS (3)
  - CEREBRAL HAEMORRHAGE [None]
  - CEREBRAL VENOUS THROMBOSIS [None]
  - JUGULAR VEIN THROMBOSIS [None]
